FAERS Safety Report 7974488-3 (Version None)
Quarter: 2011Q4

REPORT INFORMATION
  Report Type: 
  Country: None (occurrence: None)
  Receive Date: 20111213
  Receipt Date: 20111209
  Transmission Date: 20120403
  Serious: Yes (Death)
  Sender: FDA-Public Use
  Company Number: CHPA2011JP017820

PATIENT

DRUGS (1)
  1. PURSENNID [Suspect]
     Dosage: UNK, UNK
     Route: 048

REACTIONS (2)
  - VOMITING [None]
  - CARDIOVASCULAR DISORDER [None]
